FAERS Safety Report 17116501 (Version 6)
Quarter: 2020Q1

REPORT INFORMATION
  Report Type: Report from Study
  Country: KR (occurrence: KR)
  Receive Date: 20191205
  Receipt Date: 20200130
  Transmission Date: 20200409
  Serious: Yes (Death, Hospitalization)
  Sender: FDA-Public Use
  Company Number: KR-PFIZER INC-2019516179

PATIENT
  Age: 69 Year
  Sex: Male
  Weight: 45.7 kg

DRUGS (24)
  1. MOSAPRIDE [Concomitant]
     Active Substance: MOSAPRIDE
     Indication: DYSPEPSIA
     Dosage: 5 MG, 3X/DAY
     Route: 048
     Dates: start: 20191030, end: 20191113
  2. METOCLOPRAMIDE. [Concomitant]
     Active Substance: METOCLOPRAMIDE
     Dosage: 10 MG, 2X/DAY
     Route: 040
     Dates: start: 20191119, end: 20191119
  3. MOSAPRIDE [Concomitant]
     Active Substance: MOSAPRIDE
     Dosage: 5 MG, 3X/DAY
     Route: 048
     Dates: start: 20191117
  4. METOCLOPRAMIDE. [Concomitant]
     Active Substance: METOCLOPRAMIDE
     Indication: PROPHYLAXIS OF NAUSEA AND VOMITING
     Dosage: 10 MG, ONCE
     Route: 040
     Dates: start: 20191117, end: 20191117
  5. CLINOLEIC [Concomitant]
     Active Substance: OLIVE OIL\SOYBEAN OIL
     Indication: NUTRITIONAL SUPPLEMENTATION
     Dosage: 250 ML, ONCE
     Route: 041
     Dates: start: 20191117, end: 20191119
  6. PALONOSETRON. [Concomitant]
     Active Substance: PALONOSETRON HYDROCHLORIDE
     Dosage: 0.25 MG, ONCE
     Route: 041
     Dates: start: 20191121, end: 20191121
  7. GLASDEGIB [Suspect]
     Active Substance: GLASDEGIB
     Indication: ACUTE MYELOID LEUKAEMIA
     Dosage: ONCE DAILY CONTINUOUS
     Route: 048
     Dates: start: 20190821, end: 20191125
  8. LACTULOSE. [Concomitant]
     Active Substance: LACTULOSE
     Indication: CONSTIPATION PROPHYLAXIS
     Dosage: 15 ML, 2X/DAY, CONCENTRATE
     Route: 048
     Dates: start: 20191031, end: 20191113
  9. METOCLOPRAMIDE. [Concomitant]
     Active Substance: METOCLOPRAMIDE
     Dosage: 10 MG, ONCE
     Route: 040
     Dates: start: 20191118, end: 20191118
  10. SCOPOLAMINE [HYOSCINE] [Concomitant]
     Active Substance: SCOPOLAMINE
     Indication: PROPHYLAXIS
     Dosage: 10 MG, 3X/DAY
     Route: 048
     Dates: start: 20191025, end: 20191113
  11. AZACITIDINE. [Suspect]
     Active Substance: AZACITIDINE
     Indication: ACUTE MYELOID LEUKAEMIA
     Dosage: 111.8 MG, ALTERNATE DOSING SCHEDULE: D1-D3, D6-D9 EVERY CYCLE
     Route: 058
     Dates: start: 20191113, end: 20191121
  12. TARGIN PR [Concomitant]
     Indication: PAIN MANAGEMENT
     Dosage: 5 MG, 2X/DAY
     Route: 048
     Dates: start: 20191004
  13. LACTULOSE. [Concomitant]
     Active Substance: LACTULOSE
     Dosage: 15 ML, 2X/DAY, CONCENTRATE
     Route: 048
     Dates: start: 20191117
  14. DEXAMETHASONE. [Concomitant]
     Active Substance: DEXAMETHASONE
     Indication: PREMEDICATION
     Dosage: 12 MG, ONCE
     Route: 041
     Dates: start: 20191113, end: 20191115
  15. PLASMA SOLUTION [Concomitant]
     Indication: NUTRITIONAL SUPPLEMENTATION
     Dosage: 1000 ML, ONCE
     Route: 041
     Dates: start: 20191117, end: 20191117
  16. KETOROLAC [Concomitant]
     Active Substance: KETOROLAC TROMETHAMINE
     Indication: PAIN MANAGEMENT
     Dosage: 30 MG, ONCE
     Route: 040
     Dates: start: 20191117, end: 20191117
  17. LENOGRASTIM [Concomitant]
     Active Substance: LENOGRASTIM
     Indication: PROPHYLAXIS
     Dosage: 250 MG, ONCE
     Route: 041
     Dates: start: 20191117, end: 20191117
  18. LENOGRASTIM [Concomitant]
     Active Substance: LENOGRASTIM
     Dosage: 250 MG, ONCE
     Route: 041
     Dates: start: 20191121, end: 20191121
  19. OXYCODONE [Concomitant]
     Active Substance: OXYCODONE
     Indication: PAIN MANAGEMENT
     Dosage: 5 MG, 1X/DAY
     Route: 048
     Dates: start: 20191121
  20. MAGNESIUM HYDROXIDE. [Concomitant]
     Active Substance: MAGNESIUM HYDROXIDE
     Indication: ELECTROLYTE SUBSTITUTION THERAPY
     Dosage: 500 MG, 2X/DAY
     Route: 048
     Dates: start: 20191119
  21. SCOPOLAMINE [HYOSCINE] [Concomitant]
     Active Substance: SCOPOLAMINE
     Dosage: 10 MG, 3X/DAY
     Route: 048
     Dates: start: 20191117
  22. PALONOSETRON. [Concomitant]
     Active Substance: PALONOSETRON HYDROCHLORIDE
     Indication: PREMEDICATION
     Dosage: 0.25 MG, ONCE
     Route: 041
     Dates: start: 20191113, end: 20191113
  23. URSODEOXYCHOLIC ACID [Concomitant]
     Active Substance: URSODIOL
     Indication: PROPHYLAXIS
     Dosage: 200 MG, 3X/DAY
     Route: 048
     Dates: start: 20191113, end: 20191126
  24. DOMPERIDONE [Concomitant]
     Active Substance: DOMPERIDONE
     Indication: PROPHYLAXIS OF NAUSEA AND VOMITING
     Dosage: 10 MG, 3X/DAY
     Route: 048
     Dates: start: 20191120

REACTIONS (2)
  - Sepsis [Fatal]
  - Cytopenia [Fatal]

NARRATIVE: CASE EVENT DATE: 20191126
